FAERS Safety Report 4422396-7 (Version None)
Quarter: 2004Q3

REPORT INFORMATION
  Report Type: 
  Country: None (occurrence: None)
  Receive Date: 20040806
  Receipt Date: 20040726
  Transmission Date: 20050211
  Serious: Yes (Hospitalization)
  Sender: FDA-Public Use
  Company Number: 2002118341US

PATIENT
  Age: 69 Year
  Sex: Male
  Weight: 74.4 kg

DRUGS (3)
  1. DETROL LA [Suspect]
     Indication: PROPHYLAXIS
     Dosage: 4 MG, QD, ORAL
     Route: 048
     Dates: start: 20020715, end: 20020725
  2. CANDESARTAN (CANDESARTAN) [Concomitant]
  3. TERAZOSIN HCL [Concomitant]

REACTIONS (19)
  - ATRIOVENTRICULAR BLOCK COMPLETE [None]
  - AV DISSOCIATION [None]
  - CORONARY ARTERY ATHEROSCLEROSIS [None]
  - DIZZINESS [None]
  - DYSPNOEA [None]
  - ELECTROCARDIOGRAM PR PROLONGATION [None]
  - ERECTILE DYSFUNCTION [None]
  - EXTRASYSTOLES [None]
  - HYPERTENSION [None]
  - HYPOTENSION [None]
  - MASS [None]
  - MUSCULOSKELETAL CHEST PAIN [None]
  - NOCTURIA [None]
  - PALPITATIONS [None]
  - SINUS BRADYCARDIA [None]
  - SINUS TACHYCARDIA [None]
  - SUPRAVENTRICULAR EXTRASYSTOLES [None]
  - TERMINAL DRIBBLING [None]
  - VISION BLURRED [None]
